FAERS Safety Report 16386701 (Version 2)
Quarter: 2019Q2

REPORT INFORMATION
  Report Type: Spontaneous
  Country: US (occurrence: US)
  Receive Date: 20190604
  Receipt Date: 20190626
  Transmission Date: 20190711
  Serious: Yes (Life-Threatening, Hospitalization, Disabling, Other)
  Sender: FDA-Public Use
  Company Number: US-009507513-1905USA013852

PATIENT
  Age: 73 Year
  Sex: Male

DRUGS (6)
  1. LEVOTHYROXINE SODIUM. [Concomitant]
     Active Substance: LEVOTHYROXINE SODIUM
  2. ATORVASTATIN [Concomitant]
     Active Substance: ATORVASTATIN
  3. KEYTRUDA [Suspect]
     Active Substance: PEMBROLIZUMAB
     Indication: MALIGNANT MELANOMA
     Dosage: 150 MILLIGRAM, EVERY 3 WEEKS
     Route: 042
     Dates: start: 2017, end: 201810
  4. ALPRAZOLAM. [Concomitant]
     Active Substance: ALPRAZOLAM
  5. PRAZOSIN. [Concomitant]
     Active Substance: PRAZOSIN
  6. ONDANSETRON [Concomitant]
     Active Substance: ONDANSETRON

REACTIONS (8)
  - Neurodermatitis [Recovering/Resolving]
  - Skin haemorrhage [Recovering/Resolving]
  - Pruritus [Not Recovered/Not Resolved]
  - Pemphigoid [Recovering/Resolving]
  - Skin exfoliation [Recovering/Resolving]
  - Dermatitis [Not Recovered/Not Resolved]
  - Oedema peripheral [Recovering/Resolving]
  - Rash macular [Not Recovered/Not Resolved]

NARRATIVE: CASE EVENT DATE: 201806
